FAERS Safety Report 14471534 (Version 1)
Quarter: 2018Q1

REPORT INFORMATION
  Report Type: Spontaneous
  Country: US (occurrence: US)
  Receive Date: 20180131
  Receipt Date: 20180131
  Transmission Date: 20180509
  Serious: No
  Sender: FDA-Public Use
  Company Number: US-009507513-1801USA005291

PATIENT
  Sex: Female

DRUGS (1)
  1. FOLLISTIM AQ [Suspect]
     Active Substance: FOLLITROPIN
     Indication: INFERTILITY FEMALE
     Dosage: 75 UNITS DAILY 3 CYCLES
     Route: 058
     Dates: start: 20170806

REACTIONS (2)
  - Vomiting [Recovered/Resolved]
  - Hypoaesthesia [Recovered/Resolved]
